FAERS Safety Report 4526570-0 (Version None)
Quarter: 2004Q4

REPORT INFORMATION
  Report Type: 
  Country: None (occurrence: None)
  Receive Date: 20041210
  Receipt Date: 20041130
  Transmission Date: 20050328
  Serious: Yes (Life-Threatening, Other)
  Sender: FDA-Public Use
  Company Number: 2004018500

PATIENT
  Age: 66 Year
  Sex: Female
  Weight: 90 kg

DRUGS (5)
  1. VFEND [Suspect]
     Indication: CANDIDIASIS
     Dosage: 200 MG (DAILY), INTRAVENOUS
     Route: 042
     Dates: start: 20040229, end: 20040303
  2. CEFTRIAXONE [Concomitant]
  3. METRONIDAZOLE [Concomitant]
  4. LEVOTHROXINE (LEVOTHROXINE) [Concomitant]
  5. ASPIRIN [Concomitant]

REACTIONS (6)
  - CEREBROVASCULAR ACCIDENT [None]
  - GENERALISED OEDEMA [None]
  - OEDEMA MOUTH [None]
  - PNEUMONIA ASPIRATION [None]
  - SEPSIS [None]
  - TONGUE OEDEMA [None]
